FAERS Safety Report 17662214 (Version 2)
Quarter: 2020Q2

REPORT INFORMATION
  Report Type: Spontaneous
  Country: CH (occurrence: CH)
  Receive Date: 20200413
  Receipt Date: 20200424
  Transmission Date: 20200713
  Serious: Yes (Other)
  Sender: FDA-Public Use
  Company Number: CH-EMD SERONO-E2B_90076477

PATIENT
  Age: 37 Year
  Sex: Female

DRUGS (16)
  1. DECAPEPTYL (ACETATE) [Suspect]
     Active Substance: TRIPTORELIN ACETATE
     Indication: OOCYTE HARVEST
     Dosage: IN TOTAL
     Route: 058
     Dates: start: 201810, end: 201810
  2. IMOVANE [Concomitant]
     Active Substance: ZOPICLONE
     Indication: PRODUCT USED FOR UNKNOWN INDICATION
     Dates: start: 201802, end: 201807
  3. TRAZODONE [Concomitant]
     Active Substance: TRAZODONE HYDROCHLORIDE
     Indication: OOCYTE HARVEST
     Dates: start: 201901, end: 2019
  4. GONAL-F [Suspect]
     Active Substance: FOLLITROPIN
     Dates: start: 201901, end: 201901
  5. MENOPUR [Suspect]
     Active Substance: FOLLITROPIN\LUTEINIZING HORMONE
     Indication: OOCYTE HARVEST
     Dosage: THERAPY START DATE: JAN 2019
     Dates: end: 201901
  6. MERIONAL [Suspect]
     Active Substance: MENOTROPINS
     Indication: OOCYTE HARVEST
     Dosage: THERAPY START DATE: JAN 2019
     Dates: end: 201901
  7. DALMADORM [Concomitant]
     Active Substance: FLURAZEPAM HYDROCHLORIDE
     Indication: PRODUCT USED FOR UNKNOWN INDICATION
     Dates: start: 201802, end: 201807
  8. GONAL-F [Suspect]
     Active Substance: FOLLITROPIN
     Indication: OOCYTE HARVEST
     Dosage: IN TOTAL
     Route: 058
     Dates: start: 201810, end: 201810
  9. TRAZODONE [Concomitant]
     Active Substance: TRAZODONE HYDROCHLORIDE
     Indication: OOCYTE HARVEST
     Dates: start: 201808, end: 201810
  10. CETROTIDE [Suspect]
     Active Substance: CETRORELIX ACETATE
     Indication: OOCYTE HARVEST
     Dosage: THERAPY START DATE: JAN 2019
     Dates: end: 201901
  11. AZITHROMYCINE [Suspect]
     Active Substance: AZITHROMYCIN
     Indication: OOCYTE HARVEST
     Dosage: IN TOTAL
     Dates: start: 201810, end: 201810
  12. ETHINYLESTRADIOL/LEVONORGESTREL [Suspect]
     Active Substance: ETHINYL ESTRADIOL\LEVONORGESTREL
     Indication: OOCYTE HARVEST
     Dosage: THERAPY START DATE: JAN 2019 ?ETHINYLESTRADIOL: 0.02 MG AND LEVONORGESTREL: 0.1 MG
     Dates: end: 201901
  13. PUREGON                            /01348901/ [Suspect]
     Active Substance: FOLLITROPIN
     Indication: OOCYTE HARVEST
     Dosage: THERAPY START DATE: JAN 2019
     Dates: end: 201901
  14. ZOLOFT [Concomitant]
     Active Substance: SERTRALINE HYDROCHLORIDE
     Indication: PRODUCT USED FOR UNKNOWN INDICATION
     Dates: start: 201802, end: 201810
  15. ORGALUTRAN [Suspect]
     Active Substance: GANIRELIX ACETATE
     Indication: OOCYTE HARVEST
     Dosage: IN TOTAL
     Route: 058
     Dates: start: 201810, end: 201810
  16. DECAPEPTYL (ACETATE) [Suspect]
     Active Substance: TRIPTORELIN ACETATE
     Dosage: IN TOTAL
     Route: 058
     Dates: start: 201901, end: 201901

REACTIONS (1)
  - Premenstrual syndrome [Recovering/Resolving]

NARRATIVE: CASE EVENT DATE: 201810
